FAERS Safety Report 8264193-0 (Version None)
Quarter: 2012Q2

REPORT INFORMATION
  Report Type: 
  Country: None (occurrence: None)
  Receive Date: 20120403
  Receipt Date: 20120326
  Transmission Date: 20120825
  Serious: Yes (Death)
  Sender: FDA-Public Use
  Company Number: B0561393A

PATIENT
  Age: 14 Year
  Sex: Male

DRUGS (5)
  1. MESNA [Concomitant]
  2. GRANULOCYTE COL.STIM.FACT [Concomitant]
  3. CYCLOPHOSPHAMIDE [Suspect]
     Indication: SARCOMA
     Dosage: 1 G/M2/PER DAY / INTRAVENOUS
     Route: 042
  4. TOPOTECAN HYDROCHLORIDE [Suspect]
     Indication: SARCOMA
     Dosage: 3 MG/M2/PER DAY / INTRAVENOUS
     Route: 042
  5. DEXTROSE 5% AND SODIUM CHLORIDE 0.45% IN PLASTIC CONTAINER [Concomitant]

REACTIONS (3)
  - TOXICITY TO VARIOUS AGENTS [None]
  - MULTI-ORGAN FAILURE [None]
  - VENOOCCLUSIVE LIVER DISEASE [None]
